FAERS Safety Report 8457723-7 (Version None)
Quarter: 2012Q2

REPORT INFORMATION
  Report Type: 
  Country: None (occurrence: None)
  Receive Date: 20120618
  Receipt Date: 20120618
  Transmission Date: 20120825
  Serious: Yes (Hospitalization, Disabling)
  Sender: FDA-Public Use
  Company Number: None

PATIENT
  Age: 76 Year
  Sex: Male
  Weight: 70.3075 kg

DRUGS (2)
  1. ZOLADEX [Suspect]
     Indication: PROSTATE CANCER
     Dosage: IM
     Route: 030
  2. FINASTERIDE [Suspect]

REACTIONS (4)
  - PARAESTHESIA ORAL [None]
  - DYSPNOEA [None]
  - LOSS OF CONSCIOUSNESS [None]
  - BLOOD PRESSURE FLUCTUATION [None]
